FAERS Safety Report 11358828 (Version 1)
Quarter: 2015Q3

REPORT INFORMATION
  Report Type: Spontaneous
  Country: US (occurrence: None)
  Receive Date: 20150807
  Receipt Date: 20150807
  Transmission Date: 20151125
  Serious: Yes (Disabling)
  Sender: FDA-Public Use
  Company Number: None

PATIENT
  Age: 33 Year
  Sex: Female
  Weight: 51.26 kg

DRUGS (5)
  1. MELATONIN [Concomitant]
     Active Substance: MELATONIN
  2. MULTI-VITAMIN [Concomitant]
     Active Substance: .ALPHA.-TOCOPHEROL ACETATE, DL-\ASCORBIC ACID\CYANOCOBALAMIN\FLUORIDE ION\FOLIC ACID\NIACIN\PYRIDOXINE\RIBOFLAVIN\THIAMINE\VITAMIN A\VITAMIN D
  3. KLONOPIN [Concomitant]
     Active Substance: CLONAZEPAM
  4. BRINTELLIX [Suspect]
     Active Substance: VORTIOXETINE HYDROBROMIDE
     Indication: DEPRESSION
     Dosage: ONE POQAM  ONCE DAILY  TAKEN BY MOUTH??5 WEEKS-ISH
     Route: 048
  5. BRINTELLIX [Suspect]
     Active Substance: VORTIOXETINE HYDROBROMIDE
     Indication: ANXIETY
     Dosage: ONE POQAM  ONCE DAILY  TAKEN BY MOUTH??5 WEEKS-ISH
     Route: 048

REACTIONS (8)
  - Dizziness [None]
  - Abdominal pain upper [None]
  - Confusional state [None]
  - Nausea [None]
  - Vomiting [None]
  - Abdominal distension [None]
  - Diarrhoea [None]
  - Weight decreased [None]
